FAERS Safety Report 23782160 (Version 3)
Quarter: 2024Q2

REPORT INFORMATION
  Report Type: Spontaneous
  Country: DE (occurrence: DE)
  Receive Date: 20240425
  Receipt Date: 20240515
  Transmission Date: 20240715
  Serious: Yes (Hospitalization, Other)
  Sender: FDA-Public Use
  Company Number: DE-ROCHE-3438611

PATIENT
  Age: 57 Year
  Sex: Female
  Weight: 96 kg

DRUGS (4)
  1. CLADRIBINE [Suspect]
     Active Substance: CLADRIBINE
     Indication: Relapsing multiple sclerosis
     Dosage: UNK (END DATE IS ONGOING)
     Route: 048
     Dates: start: 20230105
  2. NATALIZUMAB [Suspect]
     Active Substance: NATALIZUMAB
     Indication: Relapsing multiple sclerosis
     Dosage: 300 MG (END DATE IS ONGOING)
     Route: 042
     Dates: start: 20200716, end: 20221103
  3. NATALIZUMAB [Suspect]
     Active Substance: NATALIZUMAB
     Indication: Relapsing multiple sclerosis
     Dosage: 300 MG (END DATE IS ONGOING)
     Route: 042
     Dates: start: 20200716, end: 20221103
  4. OCREVUS [Suspect]
     Active Substance: OCRELIZUMAB
     Indication: Relapsing multiple sclerosis
     Dosage: ON 28/OCT/2019, SHE RECEIVED MOST RECENT DOSE OF IV OCRELIZUMAB 300 MG.
     Route: 042
     Dates: start: 20191014, end: 20191028

REACTIONS (2)
  - Infarction [Recovered/Resolved]
  - JC polyomavirus test positive [Unknown]

NARRATIVE: CASE EVENT DATE: 20221103
